FAERS Safety Report 23918088 (Version 2)
Quarter: 2024Q2

REPORT INFORMATION
  Report Type: Spontaneous
  Country: PL (occurrence: PL)
  Receive Date: 20240530
  Receipt Date: 20240619
  Transmission Date: 20240717
  Serious: Yes (Other)
  Sender: FDA-Public Use
  Company Number: PL-JNJFOC-20240574353

PATIENT
  Sex: Male
  Weight: 90 kg

DRUGS (11)
  1. SPRAVATO [Suspect]
     Active Substance: ESKETAMINE
     Indication: Depression
     Dosage: 1-3 WEEKS: 56 MG
     Dates: start: 20231205
  2. SPRAVATO [Suspect]
     Active Substance: ESKETAMINE
     Indication: Major depression
     Dosage: IN 4 WEEKS: 84 MG
     Dates: end: 20240319
  3. SERTRALINE [Concomitant]
     Active Substance: SERTRALINE HYDROCHLORIDE
     Indication: Depression
  4. TRAZODONE [Concomitant]
     Active Substance: TRAZODONE HYDROCHLORIDE
     Indication: Depression
  5. MIRTAZAPINE [Concomitant]
     Active Substance: MIRTAZAPINE
     Indication: Major depression
  6. LAMOTRIGINE [Concomitant]
     Active Substance: LAMOTRIGINE
  7. VENLAFAXINE [Concomitant]
     Active Substance: VENLAFAXINE HYDROCHLORIDE
  8. OLANZAPINE [Concomitant]
     Active Substance: OLANZAPINE
  9. ALPRAZOLAM [Concomitant]
     Active Substance: ALPRAZOLAM
     Dosage: 0.5 MG AS NEEDED EVERY 4-5 DAYS
  10. VORTIOXETINE [Concomitant]
     Active Substance: VORTIOXETINE
     Indication: Major depression
  11. FLUPENTIXOL [Concomitant]
     Active Substance: FLUPENTIXOL
     Indication: Major depression

REACTIONS (7)
  - Blood pressure increased [Recovered/Resolved]
  - Dyschromatopsia [Recovered/Resolved]
  - Dizziness [Recovered/Resolved]
  - Somnolence [Recovered/Resolved]
  - Dysgeusia [Recovered/Resolved]
  - Hyperacusis [Recovered/Resolved]
  - Vision blurred [Recovered/Resolved]

NARRATIVE: CASE EVENT DATE: 20231205
